FAERS Safety Report 12780271 (Version 1)
Quarter: 2016Q3

REPORT INFORMATION
  Report Type: Spontaneous
  Country: US (occurrence: US)
  Receive Date: 20160926
  Receipt Date: 20160926
  Transmission Date: 20161109
  Serious: No
  Sender: FDA-Public Use
  Company Number: US-GE HEALTHCARE MEDICAL DIAGNOSTICS-INDT-PR-1602L-0001

PATIENT

DRUGS (2)
  1. INDIUM DTPA IN 111 [Suspect]
     Active Substance: INDIUM IN-111 PENTETATE DISODIUM
     Indication: HEADACHE
     Dosage: DOSE NOT REPORTED
     Route: 037
  2. INDIUM DTPA IN 111 [Suspect]
     Active Substance: INDIUM IN-111 PENTETATE DISODIUM
     Indication: DIAGNOSTIC PROCEDURE

REACTIONS (1)
  - Cerebrospinal fluid leakage [Unknown]
